FAERS Safety Report 18285487 (Version 2)
Quarter: 2020Q4

REPORT INFORMATION
  Report Type: Spontaneous
  Country: US (occurrence: US)
  Receive Date: 20200918
  Receipt Date: 20201028
  Transmission Date: 20210113
  Serious: No
  Sender: FDA-Public Use
  Company Number: US-DSJP-DSU-2020-127006

PATIENT
  Age: 71 Year
  Sex: Female

DRUGS (8)
  1. OLMESARTAN AG [Suspect]
     Active Substance: OLMESARTAN MEDOXOMIL
     Dosage: 1/4 TAB, PRN IF SHE GETS A HEADACHE
     Route: 048
     Dates: start: 202003, end: 2020
  2. EDECRINE [Concomitant]
     Indication: HYPERTENSION
     Dosage: UNK
     Route: 065
  3. BENICAR [Suspect]
     Active Substance: OLMESARTAN MEDOXOMIL
     Dosage: 1/4 TAB, PRN IF SHE GETS A HEADACHE
     Route: 048
     Dates: start: 2020
  4. BENICAR [Suspect]
     Active Substance: OLMESARTAN MEDOXOMIL
     Indication: HYPERTENSION
     Dosage: 1/2 TAB, QD
     Route: 048
     Dates: end: 202003
  5. BENICAR [Suspect]
     Active Substance: OLMESARTAN MEDOXOMIL
     Dosage: 1/4 TAB, PRN IF SHE GETS A HEADACHE
     Route: 048
     Dates: end: 202003
  6. BENICAR [Suspect]
     Active Substance: OLMESARTAN MEDOXOMIL
     Dosage: 1/2 TAB, QD
     Route: 048
     Dates: start: 2020
  7. OLMESARTAN AG [Suspect]
     Active Substance: OLMESARTAN MEDOXOMIL
     Indication: HYPERTENSION
     Dosage: 1/2 TAB, QD
     Route: 048
     Dates: start: 202003, end: 2020
  8. POTASSIUM [Concomitant]
     Active Substance: POTASSIUM
     Indication: PRODUCT USED FOR UNKNOWN INDICATION
     Dosage: UNK
     Route: 065

REACTIONS (7)
  - Aphonia [Not Recovered/Not Resolved]
  - Blood pressure fluctuation [Unknown]
  - Chest pain [Recovered/Resolved]
  - Headache [Unknown]
  - Off label use [Unknown]
  - Cough [Recovered/Resolved]
  - Bronchitis [Unknown]

NARRATIVE: CASE EVENT DATE: 202003
